FAERS Safety Report 12413628 (Version 2)
Quarter: 2016Q2

REPORT INFORMATION
  Report Type: Report from Study
  Country: US (occurrence: US)
  Receive Date: 20160527
  Receipt Date: 20160606
  Transmission Date: 20160815
  Serious: No
  Sender: FDA-Public Use
  Company Number: US-AMGEN-USASL2016061349

PATIENT
  Age: 63 Year
  Sex: Female

DRUGS (1)
  1. BLINCYTO [Suspect]
     Active Substance: BLINATUMOMAB
     Indication: MALIGNANT MELANOMA
     Dosage: 9 MG, UNK
     Route: 065
     Dates: start: 201604

REACTIONS (1)
  - Confusional state [Not Recovered/Not Resolved]
